FAERS Safety Report 8990236 (Version 3)
Quarter: 2013Q2

REPORT INFORMATION
  Report Type: Spontaneous
  Country: JP (occurrence: JP)
  Receive Date: 20121228
  Receipt Date: 20130528
  Transmission Date: 20140414
  Serious: Yes (Other)
  Sender: FDA-Public Use
  Company Number: JP-NOVOPROD-367562

PATIENT
  Age: 58 Year
  Sex: Male
  Weight: 84 kg

DRUGS (8)
  1. VICTOZA HIKACHU INJECTION [Suspect]
     Indication: TYPE 2 DIABETES MELLITUS
     Dosage: 0.9 MG, QD
     Route: 058
     Dates: start: 20110512
  2. AMARYL [Concomitant]
     Indication: TYPE 2 DIABETES MELLITUS
     Dosage: 5 MG
     Route: 048
     Dates: start: 20101122
  3. THYRADIN S [Concomitant]
     Indication: HYPOTHYROIDISM
     Dosage: 25 MG
     Route: 048
     Dates: start: 20070406
  4. ZETIA [Concomitant]
     Indication: DYSLIPIDAEMIA
     Dosage: 10 MG
     Route: 048
     Dates: start: 20100802
  5. ZYLORIC [Concomitant]
     Indication: HYPERURICAEMIA
     Dosage: 50 MG
     Route: 048
     Dates: start: 20111210
  6. CALBLOCK [Concomitant]
     Indication: HYPERTENSION
     Dosage: 16 MG
     Route: 048
     Dates: start: 20101211
  7. OLMETEC [Concomitant]
     Indication: HYPERTENSION
     Dosage: 20 MG
     Route: 048
     Dates: start: 20100130
  8. FLUITRAN [Concomitant]
     Indication: HYPERTENSION
     Dosage: 1 MG
     Route: 048
     Dates: start: 20110419

REACTIONS (1)
  - Prolactin-producing pituitary tumour [Recovering/Resolving]
